FAERS Safety Report 5907230-8 (Version None)
Quarter: 2008Q4

REPORT INFORMATION
  Report Type: 
  Country: None (occurrence: None)
  Receive Date: 20081003
  Receipt Date: 20080923
  Transmission Date: 20090506
  Serious: Yes (Other)
  Sender: FDA-Public Use
  Company Number: RO-AMGEN-US311089

PATIENT
  Age: 59 Year
  Sex: Female

DRUGS (2)
  1. ENBREL [Suspect]
     Indication: RHEUMATOID ARTHRITIS
     Route: 058
     Dates: start: 20080401, end: 20080923
  2. METHOTREXATE [Concomitant]
     Indication: RHEUMATOID ARTHRITIS
     Route: 048
     Dates: start: 20080401, end: 20080923

REACTIONS (8)
  - APHTHOUS STOMATITIS [None]
  - DYSPNOEA [None]
  - ERYTHEMA [None]
  - HYPERSENSITIVITY [None]
  - IRRITABILITY [None]
  - PARAESTHESIA [None]
  - PRURITUS [None]
  - RASH [None]
